FAERS Safety Report 16341963 (Version 3)
Quarter: 2019Q3

REPORT INFORMATION
  Report Type: Spontaneous
  Country: CZ (occurrence: CZ)
  Receive Date: 20190522
  Receipt Date: 20190711
  Transmission Date: 20191004
  Serious: Yes (Hospitalization, Other)
  Sender: FDA-Public Use
  Company Number: CZ-ROCHE-2314772

PATIENT
  Sex: Male

DRUGS (17)
  1. CAPECITABINE. [Suspect]
     Active Substance: CAPECITABINE
     Indication: RECTAL CANCER
     Dosage: 3-0-3?1500 MG /2 X PER DAY?STRENGTH: 500 MG
     Route: 048
     Dates: start: 201606
  2. OXALIPLATIN. [Suspect]
     Active Substance: OXALIPLATIN
     Indication: RECTAL CANCER
  3. TRIFLURIDINE. [Suspect]
     Active Substance: TRIFLURIDINE
     Indication: RECTAL CANCER
     Dosage: 3-0-3
     Route: 065
     Dates: start: 201804
  4. FOLINIC ACID [Suspect]
     Active Substance: LEUCOVORIN
     Indication: RECTAL CANCER
  5. IRINOTECAN HYDROCHLORIDE. [Suspect]
     Active Substance: IRINOTECAN HYDROCHLORIDE
     Indication: RECTAL CANCER
  6. OXALIPLATIN. [Suspect]
     Active Substance: OXALIPLATIN
     Indication: METASTATIC NEOPLASM
     Route: 065
     Dates: start: 201703
  7. FOLINIC ACID [Suspect]
     Active Substance: LEUCOVORIN
     Indication: METASTASES TO LUNG
     Route: 065
     Dates: start: 201712
  8. TIPIRACIL [Suspect]
     Active Substance: TIPIRACIL
     Indication: RECTAL CANCER
     Dosage: 3-0-3
     Route: 065
     Dates: start: 201804
  9. PERINDOPRIL [Concomitant]
     Active Substance: PERINDOPRIL
     Indication: HYPERTENSION
  10. AVASTIN [Suspect]
     Active Substance: BEVACIZUMAB
     Indication: RECTAL CANCER
     Route: 065
     Dates: start: 201703
  11. CAPECITABINE. [Suspect]
     Active Substance: CAPECITABINE
     Route: 048
     Dates: start: 201703
  12. ZALTRAP [Suspect]
     Active Substance: ZIV-AFLIBERCEPT
     Indication: RECTAL CANCER
  13. FLUOROURACIL. [Suspect]
     Active Substance: FLUOROURACIL
     Indication: METASTASES TO LUNG
     Route: 065
     Dates: start: 201712
  14. FLUOROURACIL. [Suspect]
     Active Substance: FLUOROURACIL
     Indication: RECTAL CANCER
  15. ZALTRAP [Suspect]
     Active Substance: ZIV-AFLIBERCEPT
     Indication: METASTASES TO LUNG
     Route: 065
     Dates: start: 201712
  16. IRINOTECAN HYDROCHLORIDE. [Suspect]
     Active Substance: IRINOTECAN HYDROCHLORIDE
     Indication: METASTASES TO LUNG
     Route: 065
     Dates: start: 201712
  17. XELODA [Suspect]
     Active Substance: CAPECITABINE
     Indication: METASTATIC NEOPLASM
     Route: 048
     Dates: start: 201703

REACTIONS (13)
  - Hypertension [Recovered/Resolved]
  - Mucosal inflammation [Unknown]
  - Leukopenia [Unknown]
  - Weight decreased [Recovered/Resolved]
  - Disease progression [Unknown]
  - Dyspepsia [Unknown]
  - Skin toxicity [Unknown]
  - Neutropenia [Unknown]
  - Neuropathy peripheral [Not Recovered/Not Resolved]
  - Peritonsillar abscess [Recovered/Resolved]
  - Diarrhoea [Unknown]
  - Gastrointestinal toxicity [Unknown]
  - Palmar-plantar erythrodysaesthesia syndrome [Unknown]

NARRATIVE: CASE EVENT DATE: 201606
